FAERS Safety Report 5595494-2 (Version None)
Quarter: 2008Q1

REPORT INFORMATION
  Report Type: 
  Country: None (occurrence: None)
  Receive Date: 20080118
  Receipt Date: 20080108
  Transmission Date: 20080703
  Serious: Yes (Other)
  Sender: FDA-Public Use
  Company Number: GB-JNJFOC-20080102907

PATIENT
  Age: 54 Year
  Sex: Female

DRUGS (6)
  1. POTASSIUM CITRATE MIXTURE [Suspect]
     Indication: CYSTITIS
  2. RAMIPRIL [Interacting]
     Indication: DRUG USE FOR UNKNOWN INDICATION
  3. ISOSORBIDE MONONITRATE [Concomitant]
  4. SIMVASTATIN [Concomitant]
  5. CITALOPRAM [Concomitant]
  6. ASPIRIN [Concomitant]

REACTIONS (3)
  - ATRIAL FIBRILLATION [None]
  - DRUG INTERACTION [None]
  - HYPERKALAEMIA [None]
